FAERS Safety Report 19628321 (Version 1)
Quarter: 2021Q3

REPORT INFORMATION
  Report Type: Spontaneous
  Country: US (occurrence: US)
  Receive Date: 20210728
  Receipt Date: 20210728
  Transmission Date: 20211014
  Serious: Yes (Death)
  Sender: FDA-Public Use
  Company Number: US-PFIZER INC-2021881322

PATIENT
  Age: 26 Year
  Sex: Female

DRUGS (3)
  1. HEPARIN SODIUM. [Suspect]
     Active Substance: HEPARIN SODIUM
     Indication: CEREBRAL VENOUS THROMBOSIS
     Dosage: UNK
     Route: 042
  2. PHENYTOIN. [Suspect]
     Active Substance: PHENYTOIN
     Indication: CEREBRAL VENOUS THROMBOSIS
     Dosage: UNK
     Route: 042
  3. MEPERIDINE HCL [Suspect]
     Active Substance: MEPERIDINE HYDROCHLORIDE
     Indication: HEADACHE
     Dosage: UNK

REACTIONS (1)
  - Drug ineffective [Fatal]
